FAERS Safety Report 10664426 (Version 1)
Quarter: 2014Q4

REPORT INFORMATION
  Report Type: Report from Study
  Country: CH (occurrence: CH)
  Receive Date: 20141219
  Receipt Date: 20141219
  Transmission Date: 20150529
  Serious: Yes (Death, Other)
  Sender: FDA-Public Use
  Company Number: CH-MYLANLABS-2014M1014912

PATIENT

DRUGS (3)
  1. LEVOMEPROMAZINE [Suspect]
     Active Substance: LEVOMEPROMAZINE
     Route: 065
  2. SCOPOLAMINE BUTYLBROMIDE [Suspect]
     Active Substance: SCOPOLAMINE
     Route: 065
  3. HALOPERIDOL. [Suspect]
     Active Substance: HALOPERIDOL
     Route: 065

REACTIONS (3)
  - Dry mouth [Unknown]
  - Parotitis [Fatal]
  - Bacterial infection [Fatal]
